FAERS Safety Report 24460811 (Version 1)
Quarter: 2024Q4

REPORT INFORMATION
  Report Type: Spontaneous
  Country: AU (occurrence: AU)
  Receive Date: 20241018
  Receipt Date: 20241018
  Transmission Date: 20250114
  Serious: No
  Sender: ROCHE
  Company Number: AU-ROCHE-3573537

PATIENT
  Sex: Male

DRUGS (2)
  1. RITUXIMAB [Suspect]
     Active Substance: RITUXIMAB
     Indication: Glomerulonephritis membranous
     Route: 064
  2. TACROLIMUS [Suspect]
     Active Substance: TACROLIMUS
     Indication: Glomerulonephritis membranous
     Route: 064

REACTIONS (3)
  - Foetal growth restriction [Unknown]
  - Foetal exposure during pregnancy [Unknown]
  - Premature baby [Unknown]
